FAERS Safety Report 7349025-7 (Version None)
Quarter: 2011Q1

REPORT INFORMATION
  Report Type: 
  Country: None (occurrence: None)
  Receive Date: 20110314
  Receipt Date: 20110307
  Transmission Date: 20110831
  Serious: Yes (Hospitalization)
  Sender: FDA-Public Use
  Company Number: TR-US-EMD SERONO, INC.-7045976

PATIENT
  Sex: Female
  Weight: 61 kg

DRUGS (5)
  1. VITAMIN D AMP [Concomitant]
  2. REBIF [Suspect]
     Indication: MULTIPLE SCLEROSIS
     Route: 058
     Dates: start: 20070801, end: 20110303
  3. EXEN TB [Concomitant]
     Indication: INTERVERTEBRAL DISC PROTRUSION
  4. IBU 600 [Concomitant]
     Indication: INTERVERTEBRAL DISC PROTRUSION
  5. CORTISONE [Concomitant]

REACTIONS (4)
  - TREMOR [None]
  - HYPERHIDROSIS [None]
  - ABASIA [None]
  - PYREXIA [None]
